FAERS Safety Report 8812693 (Version 1)
Quarter: 2012Q4

REPORT INFORMATION
  Report Type: 
  Country: GB (occurrence: GB)
  Receive Date: 20120927
  Receipt Date: 20120927
  Transmission Date: 20130627
  Serious: Yes (Death)
  Sender: FDA-Public Use
  Company Number: GB-GILEAD-2012-0061833

PATIENT
  Age: 19 Year
  Sex: Male

DRUGS (11)
  1. VISTIDE [Suspect]
     Indication: VIRAL HAEMORRHAGIC CYSTITIS
     Dosage: 1 mg/kg, Q1Wk
     Route: 042
  2. VISTIDE [Suspect]
     Dosage: 5 mg/kg, Q1Wk
  3. METHYLPREDNISOLONE [Concomitant]
     Dosage: 2 mg/kg, UNK
  4. BUSULPHAN [Concomitant]
     Dosage: 16 mg/kg, UNK
  5. CYCLOPHOSPHAMIDE [Concomitant]
     Dosage: 60 mg/kg, UNK
  6. ALEMTUZUMAB [Concomitant]
     Dosage: 100 mg, UNK
  7. CIPROFLOXACIN [Concomitant]
     Indication: ANTIBIOTIC PROPHYLAXIS
  8. POSACONAZOLE [Concomitant]
     Indication: ANTIBIOTIC PROPHYLAXIS
  9. ACICLOVIR [Concomitant]
     Indication: ANTIBIOTIC PROPHYLAXIS
  10. PENTAMIDINE [Concomitant]
     Indication: ANTIBIOTIC PROPHYLAXIS
     Route: 055
  11. ISONIAZID [Concomitant]
     Indication: ANTIBIOTIC PROPHYLAXIS

REACTIONS (1)
  - Drug ineffective for unapproved indication [Fatal]
